FAERS Safety Report 9250788 (Version 3)
Quarter: 2014Q2

REPORT INFORMATION
  Report Type: Spontaneous
  Country: US (occurrence: US)
  Receive Date: 20130424
  Receipt Date: 20140401
  Transmission Date: 20141212
  Serious: No
  Sender: FDA-Public Use
  Company Number: US-ASTRAZENECA-2013SE27168

PATIENT
  Age: 52 Year
  Sex: Male
  Weight: 83.9 kg

DRUGS (14)
  1. NEXIUM [Suspect]
     Indication: GASTROOESOPHAGEAL REFLUX DISEASE
     Route: 048
  2. NEXIUM [Suspect]
     Indication: GASTROOESOPHAGEAL REFLUX DISEASE
     Route: 048
     Dates: start: 2003, end: 20110716
  3. NEXIUM [Suspect]
     Indication: GASTROOESOPHAGEAL REFLUX DISEASE
     Route: 048
     Dates: start: 20030313
  4. ZANTAC [Concomitant]
     Indication: GASTROOESOPHAGEAL REFLUX DISEASE
  5. ENALAPRIL [Concomitant]
     Indication: HYPERTENSION
  6. AZOR [Concomitant]
     Indication: HYPERTENSION
  7. GLUCOSOMINE [Concomitant]
  8. FISH OIL [Concomitant]
  9. MULTI VITAMIN [Concomitant]
  10. PROTONIX [Concomitant]
     Indication: GASTROOESOPHAGEAL REFLUX DISEASE
     Dates: start: 2010
  11. TUMS/CALCIUM [Concomitant]
  12. CEPHALEXIN [Concomitant]
     Dates: start: 20070810
  13. LEVITRA [Concomitant]
     Dates: start: 20080707
  14. CIALIS [Concomitant]
     Dates: start: 20081107

REACTIONS (7)
  - Osteoporosis [Unknown]
  - Bone disorder [Unknown]
  - Multiple fractures [Unknown]
  - Humerus fracture [Unknown]
  - Fall [Unknown]
  - Osteopenia [Unknown]
  - Calcium deficiency [Unknown]
